FAERS Safety Report 4485305-0 (Version None)
Quarter: 2004Q4

REPORT INFORMATION
  Report Type: 
  Country: None (occurrence: None)
  Receive Date: 20041025
  Receipt Date: 20041025
  Transmission Date: 20050328
  Serious: Yes (Other)
  Sender: FDA-Public Use
  Company Number: None

PATIENT
  Sex: Female
  Weight: 41 kg

DRUGS (1)
  1. CIPRO [Suspect]
     Indication: JOINT STIFFNESS
     Dosage: 500 MG Q 12 ORAL
     Route: 048
     Dates: start: 20040804, end: 20040827

REACTIONS (2)
  - ECCHYMOSIS [None]
  - JOINT STIFFNESS [None]
